FAERS Safety Report 9221714 (Version 1)
Quarter: 2013Q1

REPORT INFORMATION
  Report Type: Spontaneous
  Country: US (occurrence: None)
  Receive Date: 20120831
  Receipt Date: 20120831
  Transmission Date: 20140127
  Serious: No
  Sender: FDA-Public Use
  Company Number: 163-22393-12062856

PATIENT
  Age: 88 Year
  Sex: Female
  Weight: 63.5 kg

DRUGS (1)
  1. ISTODAX [Suspect]
     Indication: PRODUCT USED FOR UNKNOWN INDICATION
     Route: 042
     Dates: start: 20120614, end: 20120614

REACTIONS (1)
  - Injection site reaction [None]
